FAERS Safety Report 5512577-3 (Version None)
Quarter: 2007Q4

REPORT INFORMATION
  Report Type: 
  Country: None (occurrence: None)
  Receive Date: 20071107
  Receipt Date: 20071023
  Transmission Date: 20080405
  Serious: Yes (Hospitalization)
  Sender: FDA-Public Use
  Company Number: 2007S1009368

PATIENT
  Age: 17 Year
  Sex: Male
  Weight: 60 kg

DRUGS (1)
  1. VERAPAMIL HYDROCHLORIDE [Suspect]
     Dosage: 6 GM; X1

REACTIONS (25)
  - ANURIA [None]
  - ATRIOVENTRICULAR BLOCK COMPLETE [None]
  - BUNDLE BRANCH BLOCK RIGHT [None]
  - CARDIOVASCULAR DISORDER [None]
  - DIARRHOEA [None]
  - DRUG TOXICITY [None]
  - HYPERGLYCAEMIA [None]
  - HYPOKALAEMIA [None]
  - HYPOTENSION [None]
  - INCORRECT DOSE ADMINISTERED [None]
  - LEUKOCYTOSIS [None]
  - LOSS OF CONSCIOUSNESS [None]
  - METABOLIC ACIDOSIS [None]
  - NAUSEA [None]
  - NODAL RHYTHM [None]
  - OXYGEN SATURATION DECREASED [None]
  - PLEURAL EFFUSION [None]
  - PULMONARY CONGESTION [None]
  - RENAL IMPAIRMENT [None]
  - RESPIRATORY ACIDOSIS [None]
  - SHOCK [None]
  - SINUS ARREST [None]
  - SOMNOLENCE [None]
  - SUICIDE ATTEMPT [None]
  - VOMITING [None]
